FAERS Safety Report 4358951-2 (Version None)
Quarter: 2004Q2

REPORT INFORMATION
  Report Type: 
  Country: None (occurrence: None)
  Receive Date: 20040512
  Receipt Date: 20040428
  Transmission Date: 20050107
  Serious: Yes (Death, Other)
  Sender: FDA-Public Use
  Company Number: US_0404102334

PATIENT
  Age: 39 Year
  Sex: Male
  Weight: 41 kg

DRUGS (11)
  1. XIGRIS [Suspect]
     Indication: SEPSIS
     Dosage: 980 UG
     Dates: start: 20040330, end: 20040331
  2. DOPAMINE HCL [Concomitant]
  3. TPN [Concomitant]
  4. FENTANYL CITRATE [Concomitant]
  5. HYDROCORTISONE [Concomitant]
  6. IMIPENEM [Concomitant]
  7. LORAZEPAM [Concomitant]
  8. PANTOPRAZOLE [Concomitant]
  9. LIDOCAINE W/VASOPRESSIN/NOREPINEPHRINE/ [Concomitant]
  10. TOBRAMYCIN [Concomitant]
  11. PROPOFOL [Concomitant]

REACTIONS (5)
  - CONDITION AGGRAVATED [None]
  - HAEMOPTYSIS [None]
  - PLATELET COUNT DECREASED [None]
  - RESPIRATORY FAILURE [None]
  - SEPSIS [None]
